FAERS Safety Report 18871025 (Version 1)
Quarter: 2021Q1

REPORT INFORMATION
  Report Type: Report from Study
  Country: RU (occurrence: RU)
  Receive Date: 20210210
  Receipt Date: 20210210
  Transmission Date: 20210420
  Serious: Yes (Other)
  Sender: FDA-Public Use
  Company Number: RU-SUN PHARMACEUTICAL INDUSTRIES LTD-2021R1-278463

PATIENT
  Age: 15 Year
  Sex: Male

DRUGS (2)
  1. AMILORIDE HCTZ [Suspect]
     Active Substance: AMILORIDE HYDROCHLORIDE\HYDROCHLOROTHIAZIDE
     Indication: HYPERTENSION
     Dosage: 5 MG OF AMILORIDE /50 MG OF HYDROCHLOROTHIAZIDE
     Route: 065
  2. AMILORIDE HCTZ [Suspect]
     Active Substance: AMILORIDE HYDROCHLORIDE\HYDROCHLOROTHIAZIDE
     Dosage: 2,5 MG OF AMILORIDE /25 MG OF HYDROCHLOROTHIAZIDE
     Route: 065

REACTIONS (2)
  - Drug ineffective [Unknown]
  - Blood homocysteine increased [Unknown]
